FAERS Safety Report 9833387 (Version 1)
Quarter: 2014Q1

REPORT INFORMATION
  Report Type: Spontaneous
  Country: US (occurrence: US)
  Receive Date: 20140121
  Receipt Date: 20140121
  Transmission Date: 20141002
  Serious: No
  Sender: FDA-Public Use
  Company Number: US-009507513-1401USA007354

PATIENT
  Sex: Male

DRUGS (5)
  1. ISENTRESS [Suspect]
     Indication: HIV TEST POSITIVE
     Dosage: 400 MG TWICE A DAY
     Route: 048
     Dates: start: 201201
  2. NORVIR [Concomitant]
  3. TRUVADA [Concomitant]
  4. NAPROXEN [Concomitant]
  5. PROSEDAR [Concomitant]

REACTIONS (1)
  - Rash [Not Recovered/Not Resolved]
